FAERS Safety Report 5305750-0 (Version None)
Quarter: 2007Q1

REPORT INFORMATION
  Report Type: 
  Country: None (occurrence: None)
  Receive Date: 20070201
  Receipt Date: 20061229
  Transmission Date: 20070707
  Serious: No
  Sender: FDA-Public Use
  Company Number: 2007PV027559

PATIENT
  Age: 78 Year
  Sex: Female
  Weight: 104.3273 kg

DRUGS (6)
  1. BYETTA [Suspect]
     Indication: DIABETES MELLITUS NON-INSULIN-DEPENDENT
     Dosage: SEE IMAGE
     Route: 058
     Dates: start: 20060901, end: 20061001
  2. BYETTA [Suspect]
     Indication: DIABETES MELLITUS NON-INSULIN-DEPENDENT
     Dosage: SEE IMAGE
     Route: 058
     Dates: start: 20061001
  3. AVANDIA [Concomitant]
  4. METFORMIN HCL [Concomitant]
  5. ECOTRIN [Concomitant]
  6. GLYBURIDE [Concomitant]

REACTIONS (3)
  - ANOREXIA [None]
  - INJECTION SITE PAIN [None]
  - NERVOUSNESS [None]
